FAERS Safety Report 7247937-6 (Version None)
Quarter: 2011Q1

REPORT INFORMATION
  Report Type: 
  Country: None (occurrence: None)
  Receive Date: 20110127
  Receipt Date: 20101015
  Transmission Date: 20110831
  Serious: No
  Sender: FDA-Public Use
  Company Number: US-MYLANLABS-2010S1019175

PATIENT
  Age: 44 Year
  Sex: Female

DRUGS (3)
  1. BUPROPION HYDROCHLORIDE [Suspect]
     Indication: DEPRESSION
     Route: 048
     Dates: start: 20100101
  2. LIPITOR [Concomitant]
  3. AMOXICILLIN [Suspect]
     Route: 048
     Dates: start: 20101001, end: 20101010

REACTIONS (2)
  - PRURITUS [None]
  - URTICARIA [None]
